FAERS Safety Report 17870490 (Version 1)
Quarter: 2020Q2

REPORT INFORMATION
  Report Type: Spontaneous
  Country: US (occurrence: US)
  Receive Date: 20200608
  Receipt Date: 20200608
  Transmission Date: 20200714
  Serious: No
  Sender: FDA-Public Use
  Company Number: US-PFIZER INC-2020102350

PATIENT
  Sex: Male

DRUGS (2)
  1. MEKTOVI [Suspect]
     Active Substance: BINIMETINIB
     Dosage: UNK
  2. BRAFTOVI [Suspect]
     Active Substance: ENCORAFENIB
     Dosage: UNK

REACTIONS (1)
  - Photosensitivity reaction [Unknown]
